FAERS Safety Report 8815147 (Version 1)
Quarter: 2012Q4

REPORT INFORMATION
  Report Type: 
  Country: IT (occurrence: IT)
  Receive Date: 20120928
  Receipt Date: 20120928
  Transmission Date: 20130627
  Serious: Yes (Other)
  Sender: FDA-Public Use
  Company Number: IT-JNJFOC-20120910038

PATIENT
  Age: 50 Year
  Sex: Male

DRUGS (3)
  1. HALDOL [Suspect]
     Indication: ANXIETY
     Route: 048
     Dates: start: 20120915, end: 20120916
  2. HALDOL [Suspect]
     Indication: ANXIETY
     Route: 048
  3. CIPRALEX [Concomitant]
     Indication: PRODUCT USED FOR UNKNOWN INDICATION
     Route: 048

REACTIONS (3)
  - Drug abuse [Unknown]
  - Dyskinesia [Recovering/Resolving]
  - Incorrect dose administered [Unknown]
